FAERS Safety Report 6640327-6 (Version None)
Quarter: 2010Q1

REPORT INFORMATION
  Report Type: 
  Country: None (occurrence: None)
  Receive Date: 20100315
  Receipt Date: 20100227
  Transmission Date: 20100710
  Serious: Yes (Death)
  Sender: FDA-Public Use
  Company Number: 2010BI007568

PATIENT

DRUGS (7)
  1. ZEVALIN [Suspect]
     Indication: NON-HODGKIN'S LYMPHOMA REFRACTORY
  2. RITUXIMAB [Concomitant]
  3. CARMUSTINE [Concomitant]
  4. ETOPOSIDE [Concomitant]
  5. CYTARABINE [Concomitant]
  6. MELPHALAN HYDROCHLORIDE [Concomitant]
  7. PREV MEDS [Concomitant]

REACTIONS (2)
  - BK VIRUS INFECTION [None]
  - ENCEPHALITIS VIRAL [None]
